FAERS Safety Report 7624257-9 (Version None)
Quarter: 2011Q3

REPORT INFORMATION
  Report Type: 
  Country: None (occurrence: None)
  Receive Date: 20110712
  Receipt Date: 20110627
  Transmission Date: 20111222
  Serious: Yes (Hospitalization)
  Sender: FDA-Public Use
  Company Number: 1000021964

PATIENT
  Age: 34 Year
  Sex: Female

DRUGS (2)
  1. ABILIFY [Suspect]
     Indication: DELUSION
     Dosage: 10 MG (10 MG, 1 IN 1 D),ORAL
     Route: 048
     Dates: start: 20110317, end: 20110321
  2. CITALOPRAM HYDROBROMIDE [Suspect]
     Dosage: 15 MG (15 MG, 1 IN 1 D),ORAL
     Route: 048
     Dates: start: 20110201

REACTIONS (4)
  - DYSARTHRIA [None]
  - PARKINSONISM [None]
  - DYSPHAGIA [None]
  - DRUG INTERACTION [None]
